FAERS Safety Report 8063433-0 (Version None)
Quarter: 2012Q1

REPORT INFORMATION
  Report Type: 
  Country: None (occurrence: None)
  Receive Date: 20120123
  Receipt Date: 20120117
  Transmission Date: 20120608
  Serious: Yes (Disabling)
  Sender: FDA-Public Use
  Company Number: US-PFIZER INC-2012013482

PATIENT
  Sex: Female
  Weight: 65.76 kg

DRUGS (6)
  1. GEODON [Suspect]
     Indication: DEPRESSION
     Dosage: 40 MG, 3X/DAY
     Route: 048
  2. TRAZODONE [Concomitant]
     Indication: SLEEP DISORDER
     Dosage: UNK
  3. REMERON [Concomitant]
     Indication: SLEEP DISORDER
     Dosage: UNK
  4. NEURONTIN [Suspect]
     Indication: ANXIETY
     Dosage: 300 MG, 3X/DAY
     Route: 048
  5. NEURONTIN [Suspect]
     Dosage: UNK
     Route: 048
  6. GEODON [Suspect]
     Dosage: UNK
     Route: 048

REACTIONS (1)
  - DEPRESSION [None]
